FAERS Safety Report 4851323-3 (Version None)
Quarter: 2005Q4

REPORT INFORMATION
  Report Type: 
  Country: None (occurrence: None)
  Receive Date: 20051209
  Receipt Date: 20051201
  Transmission Date: 20060501
  Serious: Yes (Other)
  Sender: FDA-Public Use
  Company Number: 2005075696

PATIENT
  Sex: Female

DRUGS (2)
  1. CELEBREX [Suspect]
     Indication: ILL-DEFINED DISORDER
  2. TICLID [Suspect]
     Indication: ILL-DEFINED DISORDER

REACTIONS (4)
  - DRUG HYPERSENSITIVITY [None]
  - SKIN DISORDER [None]
  - STENT PLACEMENT [None]
  - SWELLING FACE [None]
